FAERS Safety Report 9366497 (Version 2)
Quarter: 2013Q2

REPORT INFORMATION
  Report Type: Spontaneous
  Country: RU (occurrence: RU)
  Receive Date: 20130625
  Receipt Date: 20130627
  Transmission Date: 20140414
  Serious: Yes (Hospitalization, Other)
  Sender: FDA-Public Use
  Company Number: RU-PFIZER INC-2013181824

PATIENT
  Sex: Male

DRUGS (3)
  1. LYRICA [Suspect]
     Indication: WITHDRAWAL SYNDROME
     Dosage: 0.9 G, DAILY
     Route: 048
  2. LYRICA [Suspect]
     Indication: PAIN
     Dosage: 7 TABLETS OF 0.3 G (2.1 G), MULTIPLE INTAKES PER DAY
     Route: 048
  3. LYRICA [Suspect]
     Dosage: UP TO 10 TABLETS (3 G) PER DAY
     Route: 048

REACTIONS (21)
  - Off label use [Recovered/Resolved]
  - Drug dependence [Not Recovered/Not Resolved]
  - Drug abuse [Recovered/Resolved]
  - Withdrawal syndrome [Recovered/Resolved]
  - Tonic convulsion [Recovered/Resolved]
  - Abdominal pain [Recovered/Resolved]
  - Cough [Recovered/Resolved]
  - Nausea [Recovered/Resolved]
  - Salivary hypersecretion [Recovered/Resolved]
  - Tremor [Recovered/Resolved]
  - Decreased appetite [Recovered/Resolved]
  - Restlessness [Recovered/Resolved]
  - Labile blood pressure [Recovered/Resolved]
  - Sleep disorder [Recovered/Resolved]
  - Heart rate irregular [Recovered/Resolved]
  - Hyperhidrosis [Recovered/Resolved]
  - Anxiety [Recovered/Resolved]
  - Panic attack [Recovered/Resolved]
  - Depressed mood [Recovered/Resolved]
  - Libido decreased [Not Recovered/Not Resolved]
  - Euphoric mood [Recovered/Resolved]
